FAERS Safety Report 19018350 (Version 1)
Quarter: 2021Q1

REPORT INFORMATION
  Report Type: Spontaneous
  Country: US (occurrence: US)
  Receive Date: 20210316
  Receipt Date: 20210316
  Transmission Date: 20210420
  Serious: Yes (Disabling)
  Sender: FDA-Public Use
  Company Number: None

PATIENT
  Age: 22 Year
  Sex: Male
  Weight: 69.75 kg

DRUGS (1)
  1. FINASTERIDE. [Suspect]
     Active Substance: FINASTERIDE
     Indication: ALOPECIA
     Route: 048
     Dates: start: 20200716, end: 20200728

REACTIONS (5)
  - Hyperhidrosis [None]
  - Anxiety [None]
  - Hormone level abnormal [None]
  - Depression [None]
  - Libido decreased [None]

NARRATIVE: CASE EVENT DATE: 20200722
